FAERS Safety Report 19382209 (Version 3)
Quarter: 2021Q3

REPORT INFORMATION
  Report Type: Report from Study
  Country: FR (occurrence: FR)
  Receive Date: 20210607
  Receipt Date: 20210927
  Transmission Date: 20211014
  Serious: Yes (Hospitalization, Other)
  Sender: FDA-Public Use
  Company Number: FR-TAKEDA-2021TUS034963

PATIENT
  Age: 77 Year
  Sex: Female
  Weight: 86 kg

DRUGS (2)
  1. IXAZOMIB [Suspect]
     Active Substance: IXAZOMIB
     Indication: PLASMA CELL MYELOMA REFRACTORY
     Dosage: 4 MILLIGRAM
     Route: 048
     Dates: start: 20210525, end: 20210609
  2. DARATUMUMAB [Suspect]
     Active Substance: DARATUMUMAB
     Indication: PLASMA CELL MYELOMA REFRACTORY
     Dosage: 1360 MILLIGRAM
     Route: 042
     Dates: start: 20210525, end: 20210617

REACTIONS (4)
  - Herpes zoster [Recovered/Resolved]
  - Bronchospasm [Recovered/Resolved]
  - Dyspnoea [Recovered/Resolved]
  - Infusion related reaction [Recovered/Resolved]

NARRATIVE: CASE EVENT DATE: 20210527
